FAERS Safety Report 5638439-9 (Version None)
Quarter: 2008Q1

REPORT INFORMATION
  Report Type: 
  Country: None (occurrence: None)
  Receive Date: 20080221
  Receipt Date: 20080221
  Transmission Date: 20080703
  Serious: No
  Sender: FDA-Public Use
  Company Number: None

PATIENT
  Age: 58 Year
  Sex: Female
  Weight: 72.5755 kg

DRUGS (2)
  1. BOTOX [Suspect]
     Indication: SKIN COSMETIC PROCEDURE
     Dates: start: 20050301, end: 20050301
  2. BOTOX [Suspect]
     Indication: SKIN WRINKLING
     Dates: start: 20050301, end: 20050301

REACTIONS (7)
  - ABDOMINAL PAIN [None]
  - DIARRHOEA [None]
  - DRUG HYPERSENSITIVITY [None]
  - FALL [None]
  - HOT FLUSH [None]
  - HYPERHIDROSIS [None]
  - PAIN [None]
